FAERS Safety Report 9478782 (Version 1)
Quarter: 2013Q3

REPORT INFORMATION
  Report Type: Spontaneous
  Country: FR (occurrence: FR)
  Receive Date: 20130827
  Receipt Date: 20130827
  Transmission Date: 20140515
  Serious: Yes (Hospitalization)
  Sender: FDA-Public Use
  Company Number: FR-ASTRAZENECA-2013SE64350

PATIENT
  Age: 63 Year
  Sex: Female

DRUGS (5)
  1. ATACAND [Suspect]
     Route: 048
  2. IMETH [Suspect]
     Route: 048
  3. SPECIAFOLDINE [Suspect]
     Route: 048
  4. MABTHERA [Suspect]
     Route: 042
     Dates: start: 2009, end: 20130416
  5. PRAVASTATINE [Suspect]
     Route: 048

REACTIONS (1)
  - Pulmonary embolism [Unknown]
